FAERS Safety Report 24015129 (Version 1)
Quarter: 2024Q2

REPORT INFORMATION
  Report Type: Spontaneous
  Country: PT (occurrence: PT)
  Receive Date: 20240626
  Receipt Date: 20240626
  Transmission Date: 20240716
  Serious: Yes (Life-Threatening, Hospitalization, Other)
  Sender: FDA-Public Use
  Company Number: PT-GLANDPHARMA-PT-2024GLNLIT00381

PATIENT
  Age: 57 Year
  Sex: Male

DRUGS (4)
  1. HALOPERIDOL DECANOATE [Suspect]
     Active Substance: HALOPERIDOL DECANOATE
     Indication: Mental disorder
     Route: 065
  2. FLUOROURACIL [Suspect]
     Active Substance: FLUOROURACIL
     Indication: Colon cancer
     Route: 065
  3. LEUCOVORIN [Suspect]
     Active Substance: LEUCOVORIN\LEUCOVORIN CALCIUM
     Indication: Colon cancer
     Route: 065
  4. OXALIPLATIN [Suspect]
     Active Substance: OXALIPLATIN
     Indication: Colon cancer
     Route: 065

REACTIONS (4)
  - Cardiac arrest [Recovered/Resolved]
  - Ventricular fibrillation [Recovered/Resolved]
  - Torsade de pointes [Recovered/Resolved]
  - Arrhythmia [Recovered/Resolved]
